FAERS Safety Report 11247443 (Version 3)
Quarter: 2015Q4

REPORT INFORMATION
  Report Type: Spontaneous
  Country: FR (occurrence: FR)
  Receive Date: 20150708
  Receipt Date: 20151222
  Transmission Date: 20160304
  Serious: Yes (Hospitalization)
  Sender: FDA-Public Use
  Company Number: FR-DSJP-DSE-2015-121148

PATIENT

DRUGS (1)
  1. ALTEIS 40 MG [Suspect]
     Active Substance: OLMESARTAN MEDOXOMIL
     Indication: HYPERTENSION
     Dosage: 40 MG, QD
     Route: 048
     Dates: start: 20140406, end: 20150410

REACTIONS (5)
  - Malabsorption [Recovered/Resolved]
  - Alkalosis hypokalaemic [Recovered/Resolved]
  - Intestinal dilatation [Recovered/Resolved]
  - Ulcerative gastritis [Recovered/Resolved]
  - Duodenitis [Recovered/Resolved]

NARRATIVE: CASE EVENT DATE: 2015
